FAERS Safety Report 4635994-2 (Version None)
Quarter: 2005Q2

REPORT INFORMATION
  Report Type: 
  Country: None (occurrence: None)
  Receive Date: 20050415
  Receipt Date: 20050404
  Transmission Date: 20051028
  Serious: Yes (Hospitalization)
  Sender: FDA-Public Use
  Company Number: US-BRISTOL-MYERS SQUIBB COMPANY-12920922

PATIENT
  Age: 9 Decade
  Sex: Male

DRUGS (4)
  1. COUMADIN [Suspect]
  2. KETEK [Suspect]
     Indication: COUGH
     Route: 048
     Dates: start: 20050325, end: 20050327
  3. DIGOXIN [Concomitant]
  4. LISINOPRIL [Concomitant]

REACTIONS (2)
  - DRUG INTERACTION [None]
  - RETROPERITONEAL HAEMATOMA [None]
